FAERS Safety Report 21669334 (Version 3)
Quarter: 2022Q4

REPORT INFORMATION
  Report Type: Report from Study
  Country: CO (occurrence: CO)
  Receive Date: 20221201
  Receipt Date: 20221214
  Transmission Date: 20230113
  Serious: Yes (Hospitalization)
  Sender: FDA-Public Use
  Company Number: CO-002147023-NVSC2021CO264810

PATIENT

DRUGS (3)
  1. RUXOLITINIB [Suspect]
     Active Substance: RUXOLITINIB
     Indication: Myelofibrosis
     Dosage: 40 MG, QD
     Route: 048
  2. RUXOLITINIB [Suspect]
     Active Substance: RUXOLITINIB
     Dosage: 20 MG, Q12H
     Route: 048
  3. RUXOLITINIB [Suspect]
     Active Substance: RUXOLITINIB
     Dosage: UNK
     Route: 048

REACTIONS (5)
  - Decreased immune responsiveness [Unknown]
  - Discouragement [Unknown]
  - Malaise [Unknown]
  - Inappropriate schedule of product administration [Unknown]
  - Drug ineffective [Unknown]
